FAERS Safety Report 4756807-4 (Version None)
Quarter: 2005Q3

REPORT INFORMATION
  Report Type: 
  Country: None (occurrence: None)
  Receive Date: 20050830
  Receipt Date: 20050613
  Transmission Date: 20060218
  Serious: Yes (Hospitalization, Other)
  Sender: FDA-Public Use
  Company Number: US-BRISTOL-MYERS SQUIBB COMPANY-13004080

PATIENT
  Age: 77 Year
  Sex: Male

DRUGS (18)
  1. CETUXIMAB [Suspect]
     Indication: NON-SMALL CELL LUNG CANCER
     Route: 042
     Dates: start: 20050329
  2. CARBOPLATIN [Suspect]
     Indication: NON-SMALL CELL LUNG CANCER
     Dosage: ADMINISTERED EVERY THREE WEEKS. ALSO REC'D ON 05-JUL-05.
     Route: 042
     Dates: start: 20050404
  3. PACLITAXEL [Suspect]
     Indication: NON-SMALL CELL LUNG CANCER
     Dosage: WEEKLY X 3. ALSO REC'E 05-JUL-05 (479 MG/4TH COURSE).
     Route: 042
     Dates: start: 20050404
  4. ADVAIR DISKUS 100/50 [Concomitant]
     Dosage: 100/50
     Dates: start: 20050101
  5. DIOVAN [Concomitant]
     Dates: start: 20030101
  6. DOXAZOSIN [Concomitant]
     Dates: start: 20000101
  7. FUROSEMIDE [Concomitant]
     Dates: start: 20000101
  8. GUANETHIDINE SULFATE [Concomitant]
     Dates: start: 20000101
  9. LISINOPRIL [Concomitant]
     Dates: start: 20040301
  10. PROTONIX [Concomitant]
     Dates: start: 20050101
  11. TUSSIONEX [Concomitant]
     Dates: start: 20050101
  12. UNISOM [Concomitant]
     Dates: start: 20050101
  13. VERAPAMIL [Concomitant]
     Dates: start: 20030101
  14. ZANTAC [Concomitant]
     Dates: start: 20050503
  15. DELSYM [Concomitant]
     Dates: start: 20050419
  16. MAGNESIUM OXIDE [Concomitant]
     Route: 048
     Dates: start: 20050601
  17. DELSYM [Concomitant]
     Dates: start: 20050419
  18. IMODIUM [Concomitant]
     Dates: start: 20050414

REACTIONS (17)
  - ANAEMIA [None]
  - AORTIC ATHEROSCLEROSIS [None]
  - AORTIC DILATATION [None]
  - ARRHYTHMIA [None]
  - ATELECTASIS [None]
  - ATRIAL FIBRILLATION [None]
  - BLOOD UREA INCREASED [None]
  - BUNDLE BRANCH BLOCK RIGHT [None]
  - CARDIAC MURMUR [None]
  - DILATATION ATRIAL [None]
  - ELECTROLYTE IMBALANCE [None]
  - HYPOMAGNESAEMIA [None]
  - PLATELET COUNT INCREASED [None]
  - PULMONARY HYPERTENSION [None]
  - TACHYCARDIA [None]
  - TRICUSPID VALVE INCOMPETENCE [None]
  - VENTRICULAR HYPERTROPHY [None]
